FAERS Safety Report 23238392 (Version 1)
Quarter: 2023Q4

REPORT INFORMATION
  Report Type: Spontaneous
  Country: NL (occurrence: NL)
  Receive Date: 20231129
  Receipt Date: 20231129
  Transmission Date: 20240110
  Serious: Yes (Hospitalization)
  Sender: FDA-Public Use
  Company Number: None

PATIENT
  Age: 64 Year
  Sex: Female
  Weight: 70 kg

DRUGS (1)
  1. CARBAMAZEPINE [Suspect]
     Active Substance: CARBAMAZEPINE
     Indication: Trigeminal neuralgia
     Dosage: 1 DOSAGE FORM (3 TOT 4X PER DAG)
     Route: 065
     Dates: start: 20220819, end: 20220829

REACTIONS (4)
  - Chills [Recovered/Resolved]
  - Hepatitis toxic [Recovered/Resolved]
  - Hyperpyrexia [Recovered/Resolved]
  - Night sweats [Recovered/Resolved]
